FAERS Safety Report 8179477 (Version 6)
Quarter: 2014Q1

REPORT INFORMATION
  Report Type: Report from Study
  Country: DE (occurrence: DE)
  Receive Date: 20111013
  Receipt Date: 20140127
  Transmission Date: 20141002
  Serious: Yes (Death, Life-Threatening, Hospitalization, Other)
  Sender: FDA-Public Use
  Company Number: GXKR2011DE03035

PATIENT
  Age: 59 Year
  Sex: Female

DRUGS (37)
  1. ACETYLSALICYLIC ACID [Suspect]
     Indication: PERIPHERAL ARTERIAL OCCLUSIVE DISEASE
     Dosage: 100 MG, UNK
     Route: 048
     Dates: start: 19960701, end: 20111006
  2. PREDNISOLONE [Suspect]
     Indication: COLITIS
     Dosage: 150 MG, UNK
     Route: 048
     Dates: start: 20110914, end: 20110927
  3. PREDNISOLONE [Suspect]
     Dosage: 60 MG, UNK
     Route: 048
     Dates: start: 20110927
  4. IPILIMUMAB [Suspect]
     Indication: MALIGNANT MELANOMA
     Dosage: 171 MG, UNK
     Route: 042
     Dates: start: 20110719
  5. IPILIMUMAB [Suspect]
     Dosage: 162 MG, UNK
     Dates: start: 20110902
  6. FRAGMIN /NET/ [Suspect]
     Dosage: UNK UKN, UNK
     Route: 058
     Dates: start: 20110909, end: 20110927
  7. GEMCITABINE [Suspect]
     Dosage: UNK UKN, UNK
  8. METHYLPREDNISOLONE [Concomitant]
     Indication: DIARRHOEA
     Dosage: 125 MG, UNK
     Route: 041
     Dates: start: 20110910
  9. METHYLPREDNISOLONE [Concomitant]
     Dosage: 150 MG, UNK
     Route: 042
     Dates: start: 20110930
  10. ARIXTRA [Concomitant]
     Dosage: 2.5 MG, UNK
     Route: 058
     Dates: start: 20110922
  11. ARIXTRA [Concomitant]
     Dosage: UNK MG, UNK, }2.5 MG
     Route: 058
     Dates: end: 20110921
  12. ARIXTRA [Concomitant]
     Dosage: 2.5 MG, UNK
     Route: 058
     Dates: start: 20110913
  13. ARIXTRA [Concomitant]
     Dosage: UNK MG, UNK, }2.5 MG
     Route: 058
     Dates: start: 20110720, end: 20110909
  14. HEPARIN [Concomitant]
     Dosage: UNK UKN, UNK
  15. ZOPICLON [Concomitant]
     Dosage: UNK UKN, UNK
     Dates: start: 20110719
  16. PANTOZOL [Concomitant]
     Dosage: 40 MG, BID
     Dates: start: 20110907, end: 20110930
  17. PANTOZOL [Concomitant]
     Dosage: UNK UKN, UNK
     Route: 042
     Dates: start: 20111006
  18. LOPERAMIDE [Concomitant]
     Indication: DIARRHOEA
     Dosage: UP TO 5 TABLESPOONS, PRN
     Dates: start: 20110922
  19. SALOFALK ^AVENTIS^ [Concomitant]
     Indication: DIARRHOEA
     Dosage: 1500 MG, UNK
     Dates: start: 20110919
  20. MESALAZINE [Concomitant]
     Dosage: 1 TSP, TID
     Dates: start: 20110919
  21. LACTOBACILLUS [Concomitant]
     Dosage: UNK UKN, UNK
     Dates: start: 20110901, end: 20110926
  22. BLOOD CELLS, PACKED HUMAN [Concomitant]
     Dosage: 2 DF, ONCE/SINGLE
     Route: 042
     Dates: start: 20110916, end: 20110916
  23. BLOOD CELLS, PACKED HUMAN [Concomitant]
     Dosage: 1 DF, ONCE/SINGLE
     Route: 042
     Dates: start: 20110924, end: 20110924
  24. BLOOD CELLS, PACKED HUMAN [Concomitant]
     Dosage: 2 DF, ONCE/SINGLE
     Route: 042
     Dates: start: 20111008, end: 20111008
  25. BLOOD CELLS, PACKED HUMAN [Concomitant]
     Dosage: 1 DF, ONCE/SINGLE
     Route: 042
     Dates: start: 20111012, end: 20111012
  26. NADROPARIN [Concomitant]
     Dosage: 0.3 ML, UNK
     Dates: start: 20110926
  27. NADROPARIN [Concomitant]
     Dosage: 0.6 ML, BID
     Dates: start: 20110929
  28. NADROPARIN [Concomitant]
     Dosage: 0.6 ML, BID
     Dates: start: 20111004, end: 20111004
  29. ALPROSTADIL [Concomitant]
     Dosage: UNK UKN, UNK
     Dates: start: 20110916, end: 20110920
  30. METRONIDAZOLE [Concomitant]
     Dosage: 500 MG, BID
     Route: 048
     Dates: end: 20111004
  31. CIPROFLOXACIN [Concomitant]
     Dosage: 500 MG, UNK
     Route: 048
  32. CIPROFLOXACIN [Concomitant]
     Dosage: UNK UKN, UNK
     Route: 042
     Dates: start: 20111006
  33. PLATELETS, HUMAN BLOOD [Concomitant]
     Dosage: 2 DF, ONCE/SINGLE
     Route: 042
     Dates: start: 20111012, end: 20111012
  34. INFLIXIMAB [Concomitant]
     Indication: INFLAMMATORY BOWEL DISEASE
     Dosage: 300 MG I.V.
     Route: 042
     Dates: start: 20111007
  35. FILGRASTIM [Concomitant]
     Indication: PANCYTOPENIA
  36. CLINDAMYCIN [Concomitant]
     Dosage: UNK UKN, UNK
     Dates: start: 20111004, end: 20111005
  37. FLUCONAZOLE [Concomitant]
     Dosage: UNK UKN, UNK
     Route: 042
     Dates: start: 20111006

REACTIONS (14)
  - Respiratory failure [Fatal]
  - Cerebral haemorrhage [Fatal]
  - Unresponsive to stimuli [Fatal]
  - Paresis [Fatal]
  - Vomiting [Fatal]
  - Pancytopenia [Unknown]
  - Colitis [Fatal]
  - Diarrhoea [Fatal]
  - Large intestinal haemorrhage [Fatal]
  - Vascular occlusion [Not Recovered/Not Resolved]
  - Sensory loss [Not Recovered/Not Resolved]
  - Neoplasm malignant [Fatal]
  - Disease progression [Fatal]
  - Diarrhoea haemorrhagic [Unknown]
